FAERS Safety Report 14963108 (Version 2)
Quarter: 2018Q3

REPORT INFORMATION
  Report Type: Report from Study
  Country: NL (occurrence: NL)
  Receive Date: 20180601
  Receipt Date: 20180828
  Transmission Date: 20181010
  Serious: Yes (Death, Other)
  Sender: FDA-Public Use
  Company Number: NL-AMGEN-NLDSL2018074176

PATIENT
  Age: 73 Year
  Sex: Female

DRUGS (1)
  1. ARANESP [Suspect]
     Active Substance: DARBEPOETIN ALFA
     Indication: NEPHROGENIC ANAEMIA
     Dosage: 60 MCG, (0.3 ML), Q3WK
     Route: 058

REACTIONS (7)
  - Cardiac death [Fatal]
  - Hypertension [Unknown]
  - Carotid artery disease [Unknown]
  - Haemoglobin abnormal [Unknown]
  - Dyspnoea [Unknown]
  - Diabetes mellitus [Unknown]
  - Chest pain [Unknown]

NARRATIVE: CASE EVENT DATE: 20180523
